FAERS Safety Report 4576292-5 (Version None)
Quarter: 2005Q1

REPORT INFORMATION
  Report Type: 
  Country: None (occurrence: None)
  Receive Date: 20050207
  Receipt Date: 20050126
  Transmission Date: 20050727
  Serious: Yes (Life-Threatening, Hospitalization, Disabling)
  Sender: FDA-Public Use
  Company Number: 2005021846

PATIENT
  Age: 13 Year
  Sex: Female
  Weight: 16 kg

DRUGS (1)
  1. SOMATROPIN (SOMATROPIN) [Suspect]
     Indication: HYPOPITUITARISM
     Dosage: 1 MG (1 MG DAILY) SUBCUTANEOUS
     Route: 058
     Dates: start: 19921001, end: 20000107

REACTIONS (1)
  - TONGUE NEOPLASM MALIGNANT STAGE UNSPECIFIED [None]
